FAERS Safety Report 7436116-5 (Version None)
Quarter: 2011Q2

REPORT INFORMATION
  Report Type: 
  Country: None (occurrence: None)
  Receive Date: 20110425
  Receipt Date: 20100519
  Transmission Date: 20111010
  Serious: Yes (Other)
  Sender: FDA-Public Use
  Company Number: US-BAYER-201023161NA

PATIENT
  Age: 57 Year
  Sex: Female
  Weight: 68.027 kg

DRUGS (5)
  1. MULTI-VITAMIN [Concomitant]
  2. CIPRO [Suspect]
     Indication: PRODUCT USED FOR UNKNOWN INDICATION
  3. LEVAQUIN [Concomitant]
  4. NEXIUM [Concomitant]
  5. CALCIUM CARBONATE W/VITAMIN D NOS [Concomitant]

REACTIONS (4)
  - ADVERSE DRUG REACTION [None]
  - OEDEMA PERIPHERAL [None]
  - PAIN IN EXTREMITY [None]
  - ABASIA [None]
